FAERS Safety Report 23072812 (Version 1)
Quarter: 2023Q4

REPORT INFORMATION
  Report Type: Spontaneous
  Country: US (occurrence: None)
  Receive Date: 20231017
  Receipt Date: 20231017
  Transmission Date: 20240109
  Serious: Yes (Hospitalization)
  Sender: FDA-Public Use
  Company Number: US-ARIS GLOBAL-ADM202301-000028

PATIENT
  Sex: Male

DRUGS (2)
  1. GOCOVRI [Suspect]
     Active Substance: AMANTADINE
     Indication: Product used for unknown indication
     Dates: start: 20221215
  2. GOCOVRI [Suspect]
     Active Substance: AMANTADINE

REACTIONS (3)
  - Fall [Unknown]
  - Confusional state [Unknown]
  - Hallucination [Unknown]
